FAERS Safety Report 8825334 (Version 3)
Quarter: 2012Q4

REPORT INFORMATION
  Report Type: 
  Country: US (occurrence: US)
  Receive Date: 20121004
  Receipt Date: 20121221
  Transmission Date: 20130627
  Serious: Yes (Other)
  Sender: FDA-Public Use
  Company Number: US-009507513-2012SP034975

PATIENT

DRUGS (2)
  1. NUVARING [Suspect]
     Indication: CONTRACEPTION
     Dosage: UNK
     Route: 067
     Dates: start: 200602, end: 20070403
  2. NUVARING [Suspect]
     Dosage: UNK
     Route: 067
     Dates: end: 20100818

REACTIONS (10)
  - Cerebrovascular accident [Recovered/Resolved with Sequelae]
  - Back disorder [Unknown]
  - Otorhinolaryngological surgery [Unknown]
  - Seasonal allergy [Unknown]
  - Cystocele [Unknown]
  - Uterine prolapse [Unknown]
  - Rectocele [Unknown]
  - Colposcopy [Unknown]
  - Cervical dysplasia [Unknown]
  - Papilloma viral infection [Unknown]
